FAERS Safety Report 6170167-6 (Version None)
Quarter: 2009Q2

REPORT INFORMATION
  Report Type: 
  Country: None (occurrence: None)
  Receive Date: 20090428
  Receipt Date: 20090417
  Transmission Date: 20091009
  Serious: Yes (Death, Other)
  Sender: FDA-Public Use
  Company Number: GB-CELGENEUS-167-20785-09042041

PATIENT

DRUGS (3)
  1. THALOMID [Suspect]
     Indication: PRIMARY AMYLOIDOSIS
     Route: 048
  2. CYCLOPHOSPHAMIDE [Suspect]
     Indication: PRIMARY AMYLOIDOSIS
     Route: 048
  3. DEXAMETHASONE 4MG TAB [Suspect]
     Indication: PRIMARY AMYLOIDOSIS
     Route: 048

REACTIONS (2)
  - DEATH [None]
  - FLUID RETENTION [None]
